FAERS Safety Report 6379694-X (Version None)
Quarter: 2009Q3

REPORT INFORMATION
  Report Type: 
  Country: None (occurrence: None)
  Receive Date: 20090928
  Receipt Date: 20090925
  Transmission Date: 20100115
  Serious: Yes (Death, Hospitalization)
  Sender: FDA-Public Use
  Company Number: GB-WYE-G04509509

PATIENT
  Sex: Male

DRUGS (3)
  1. GEMTUZUMAB OZOGAMICIN [Suspect]
     Indication: ACUTE MYELOID LEUKAEMIA
     Dosage: UNKNOWN
     Dates: start: 20081031, end: 20081115
  2. DAUNORUBICIN HCL [Suspect]
     Dosage: UNKNOWN
     Dates: start: 20081031, end: 20081115
  3. ARA-C [Suspect]
     Dosage: UNKNOWN
     Dates: start: 20081031, end: 20081115

REACTIONS (2)
  - CARDIO-RESPIRATORY ARREST [None]
  - LOWER RESPIRATORY TRACT INFECTION [None]
